FAERS Safety Report 9181745 (Version 2)
Quarter: 2014Q3

REPORT INFORMATION
  Report Type: Spontaneous
  Country: US (occurrence: US)
  Receive Date: 20130322
  Receipt Date: 20140812
  Transmission Date: 20150326
  Serious: Yes (Other)
  Sender: FDA-Public Use
  Company Number: US-JNJFOC-20130313352

PATIENT

DRUGS (7)
  1. CYCLOPHOSPHAMIDE. [Suspect]
     Active Substance: CYCLOPHOSPHAMIDE
     Indication: PLASMA CELL MYELOMA
     Route: 065
  2. DEXAMETHASONE. [Suspect]
     Active Substance: DEXAMETHASONE
     Indication: PLASMA CELL MYELOMA
     Route: 065
  3. MELPHALAN [Suspect]
     Active Substance: MELPHALAN
     Indication: PLASMA CELL MYELOMA
     Route: 065
  4. DOXORUBICIN HYDROCHLORIDE. [Suspect]
     Active Substance: DOXORUBICIN HYDROCHLORIDE
     Indication: PLASMA CELL MYELOMA
     Route: 042
  5. CARFILZOMIB [Suspect]
     Active Substance: CARFILZOMIB
     Indication: PLASMA CELL MYELOMA
     Dosage: ADMINISTRATION OVER 30 MIN ON DAYS??1, 2, 8, 9, 15 AND 16 OF A 28-DAY CYCLE
     Route: 042
  6. ASCORBIC ACID. [Suspect]
     Active Substance: ASCORBIC ACID
     Indication: PLASMA CELL MYELOMA
     Route: 065
  7. BORTEZOMIB [Suspect]
     Active Substance: BORTEZOMIB
     Indication: PLASMA CELL MYELOMA
     Dosage: MORE THAN 1.0 MG/M2
     Route: 065

REACTIONS (4)
  - Adverse event [Unknown]
  - Pyrexia [Unknown]
  - Plasma cell myeloma [Unknown]
  - Thrombocytopenia [Unknown]
